FAERS Safety Report 7880084-9 (Version None)
Quarter: 2011Q4

REPORT INFORMATION
  Report Type: 
  Country: None (occurrence: None)
  Receive Date: 20111101
  Receipt Date: 20111017
  Transmission Date: 20120403
  Serious: Yes (Hospitalization)
  Sender: FDA-Public Use
  Company Number: IN-WATSON-2011-17253

PATIENT
  Age: 24 Year
  Sex: Female

DRUGS (2)
  1. LEVETIRACETAM [Suspect]
     Indication: GRAND MAL CONVULSION
     Dosage: DOSE ESCALATED OVER 2 MONTHS TO 1500 MG/DAY
     Route: 065
  2. CLOBAZAM [Suspect]
     Indication: GRAND MAL CONVULSION
     Dosage: 15 MG, DAILY
     Route: 065

REACTIONS (3)
  - GRAND MAL CONVULSION [None]
  - STATUS EPILEPTICUS [None]
  - CONDITION AGGRAVATED [None]
